FAERS Safety Report 6203303-3 (Version None)
Quarter: 2009Q2

REPORT INFORMATION
  Report Type: 
  Country: None (occurrence: None)
  Receive Date: 20090521
  Receipt Date: 20090507
  Transmission Date: 20091009
  Serious: Yes (Hospitalization)
  Sender: FDA-Public Use
  Company Number: 1000006276

PATIENT
  Age: 88 Year
  Sex: Female

DRUGS (13)
  1. CITALOPRAM HYDROBROMIDE [Suspect]
     Dosage: 20 MG (20 MG, 1 IN 1 D), ORAL
     Route: 048
     Dates: end: 20090109
  2. IMOVANE (TABLETS) [Suspect]
     Dosage: 3.75 MG (3.75 MG, 1 IN 1 D), ORAL
     Route: 048
  3. MODOPAR (CAPSULES) [Suspect]
     Dosage: 150 MG/37.5 MG (3 IN 1 D), ORAL
     Route: 048
     Dates: end: 20090109
  4. RIVOTRIL (DROPS (FOR ORAL USE) ) [Suspect]
     Dosage: 15 GTT (15 GTT, 1 IN 1 D), ORAL
     Route: 048
     Dates: end: 20090109
  5. SKENAN (CAPSULES) [Suspect]
     Dosage: 20 MG (20 MG, 1 IN 1 D), ORAL
     Route: 048
     Dates: end: 20090109
  6. SERESTA (TABLETS) [Suspect]
     Dosage: 15 MG (15 MG, 1 IN 1 D), ORAL
     Route: 048
     Dates: end: 20090109
  7. NITRODERM [Concomitant]
  8. LASIX [Concomitant]
  9. KARDEGIC [Concomitant]
  10. LACRIGEL [Concomitant]
  11. DIFFU-K [Concomitant]
  12. CARDENSIEL [Concomitant]
  13. EFFERALGAN [Concomitant]

REACTIONS (11)
  - ALTERED STATE OF CONSCIOUSNESS [None]
  - CEREBRAL ATROPHY [None]
  - DISTURBANCE IN ATTENTION [None]
  - HYPERKINESIA [None]
  - HYPERTONIA [None]
  - MENINGIOMA [None]
  - METABOLIC ENCEPHALOPATHY [None]
  - RENAL FAILURE [None]
  - SOMNOLENCE [None]
  - TREMOR [None]
  - VASCULAR ENCEPHALOPATHY [None]
